FAERS Safety Report 10661053 (Version 1)
Quarter: 2014Q4

REPORT INFORMATION
  Report Type: Spontaneous
  Country: NL (occurrence: NL)
  Receive Date: 20141218
  Receipt Date: 20141218
  Transmission Date: 20150529
  Serious: Yes (Hospitalization)
  Sender: FDA-Public Use
  Company Number: NL-UCBSA-2014021506

PATIENT
  Age: 36 Year
  Sex: Female
  Weight: 85 kg

DRUGS (3)
  1. LEVETIRACETAM. [Suspect]
     Active Substance: LEVETIRACETAM
     Indication: EPILEPSY
     Dosage: 50 MG, 3X/DAY (TID)
     Route: 048
     Dates: start: 2000
  2. LAMOTRIGINE. [Interacting]
     Active Substance: LAMOTRIGINE
     Indication: EPILEPSY
     Dosage: 50 MG, 3X/DAY (TID)
     Route: 048
     Dates: start: 2000
  3. ARTHROTEC [Interacting]
     Active Substance: DICLOFENAC SODIUM\MISOPROSTOL
     Indication: PAIN IN JAW
     Dosage: 100 MG DAILY DOSE
     Route: 048
     Dates: start: 20140128, end: 20140129

REACTIONS (3)
  - Dystonia [Recovered/Resolved]
  - Drug interaction [Recovered/Resolved]
  - Osteitis [Unknown]

NARRATIVE: CASE EVENT DATE: 20140128
